FAERS Safety Report 4683418-1 (Version None)
Quarter: 2005Q2

REPORT INFORMATION
  Report Type: 
  Country: None (occurrence: None)
  Receive Date: 20050606
  Receipt Date: 20050606
  Transmission Date: 20051028
  Serious: Yes (Other)
  Sender: FDA-Public Use
  Company Number: None

PATIENT
  Age: 46 Year
  Sex: Female

DRUGS (1)
  1. TUBERSOL [Suspect]
     Dosage: INTRADERMAL
     Route: 023
     Dates: start: 20050502

REACTIONS (2)
  - ERYTHEMA [None]
  - INJECTION SITE SWELLING [None]
